FAERS Safety Report 8602997-2 (Version None)
Quarter: 2012Q3

REPORT INFORMATION
  Report Type: 
  Country: None (occurrence: None)
  Receive Date: 20120817
  Receipt Date: 20120501
  Transmission Date: 20120928
  Serious: No
  Sender: FDA-Public Use
  Company Number: US-GLAXOSMITHKLINE-A0976470A

PATIENT
  Sex: Female
  Weight: 145 kg

DRUGS (16)
  1. LISINOPRIL [Concomitant]
  2. ENDOMETRIN [Concomitant]
  3. AMBIEN [Concomitant]
  4. FENTANYL CITRATE [Concomitant]
  5. ZOFRAN [Concomitant]
  6. ATIVAN [Concomitant]
  7. DILAUDID [Concomitant]
  8. LEXAPRO [Concomitant]
  9. GABAPENTIN [Concomitant]
  10. METOPROLOL TARTRATE [Concomitant]
  11. NORVASC [Concomitant]
  12. DEMADEX [Concomitant]
  13. NEXIUM [Concomitant]
  14. PHENERGAN HCL [Concomitant]
  15. VOTRIENT [Suspect]
     Indication: PRODUCT USED FOR UNKNOWN INDICATION
     Dosage: 200MG PER DAY
     Route: 048
  16. POTASSIUM [Concomitant]

REACTIONS (2)
  - ABDOMINAL PAIN UPPER [None]
  - DIARRHOEA [None]
